FAERS Safety Report 17283214 (Version 1)
Quarter: 2020Q1

REPORT INFORMATION
  Report Type: Spontaneous
  Country: US (occurrence: US)
  Receive Date: 20200117
  Receipt Date: 20200117
  Transmission Date: 20200409
  Serious: No
  Sender: FDA-Public Use
  Company Number: None

PATIENT

DRUGS (7)
  1. BUSPIRONE [Suspect]
     Active Substance: BUSPIRONE HYDROCHLORIDE
     Dates: start: 20160713, end: 20160817
  2. LITHIUM. [Concomitant]
     Active Substance: LITHIUM
     Dates: start: 20160708, end: 20160714
  3. TRAZODONE [Concomitant]
     Active Substance: TRAZODONE HYDROCHLORIDE
     Dates: start: 20190129, end: 20200108
  4. PRISTIQ EXTENDED-RELEASE [Concomitant]
     Active Substance: DESVENLAFAXINE SUCCINATE
     Dates: start: 20120514, end: 20120521
  5. KLONOPIN 0.5MG [Concomitant]
     Dates: start: 20120818, end: 20160713
  6. HYDROXYZINE [Concomitant]
     Active Substance: HYDROXYZINE HYDROCHLORIDE
  7. CLONIDINE 0.1MG [Concomitant]
     Active Substance: CLONIDINE
     Dates: start: 20181019, end: 20181118

REACTIONS (1)
  - Drug ineffective [None]
